FAERS Safety Report 10863729 (Version 2)
Quarter: 2015Q2

REPORT INFORMATION
  Report Type: Spontaneous
  Country: US (occurrence: US)
  Receive Date: 20150224
  Receipt Date: 20150409
  Transmission Date: 20150821
  Serious: Yes (Hospitalization)
  Sender: FDA-Public Use
  Company Number: US-ENDO PHARMACEUTICALS INC.-SPLN20150033

PATIENT
  Age: 6 Year
  Sex: Female

DRUGS (1)
  1. SUPPRELIN LA [Suspect]
     Active Substance: HISTRELIN ACETATE
     Indication: PRODUCT USED FOR UNKNOWN INDICATION
     Route: 065
     Dates: start: 20150210

REACTIONS (2)
  - Peripheral swelling [Not Recovered/Not Resolved]
  - Implant site rash [Not Recovered/Not Resolved]

NARRATIVE: CASE EVENT DATE: 20150216
